FAERS Safety Report 8576652-1 (Version None)
Quarter: 2012Q3

REPORT INFORMATION
  Report Type: 
  Country: None (occurrence: None)
  Receive Date: 20120807
  Receipt Date: 20120112
  Transmission Date: 20120928
  Serious: Yes (Other)
  Sender: FDA-Public Use
  Company Number: US-ROCHE-1096772

PATIENT
  Sex: Female

DRUGS (4)
  1. XOLAIR [Suspect]
     Indication: ASTHMA
     Route: 065
     Dates: end: 20071201
  2. SINGULAIR [Concomitant]
     Route: 065
  3. FORADIL [Concomitant]
     Route: 065
  4. ALLEGRA [Concomitant]
     Route: 065

REACTIONS (9)
  - SINUSITIS [None]
  - RASH [None]
  - ASTHMA [None]
  - HEADACHE [None]
  - COUGH [None]
  - WHEEZING [None]
  - EYE SWELLING [None]
  - FOOD ALLERGY [None]
  - DYSPNOEA [None]
